FAERS Safety Report 11196600 (Version 1)
Quarter: 2015Q2

REPORT INFORMATION
  Report Type: Spontaneous
  Country: US (occurrence: US)
  Receive Date: 20150617
  Receipt Date: 20150617
  Transmission Date: 20150821
  Serious: No
  Sender: FDA-Public Use
  Company Number: US-EISAI MEDICAL RESEARCH-EC-2015-007459

PATIENT
  Age: 43 Year
  Sex: Female

DRUGS (9)
  1. BELVIQ [Suspect]
     Active Substance: LORCASERIN HYDROCHLORIDE
     Indication: WEIGHT DECREASED
     Route: 048
     Dates: start: 20150605
  2. FLAXSEED [Concomitant]
     Active Substance: FLAX SEED
     Indication: NUTRITIONAL SUPPLEMENTATION
     Dosage: UNKNOWN
     Route: 048
  3. FISH OIL [Concomitant]
     Active Substance: FISH OIL
     Indication: NUTRITIONAL SUPPLEMENTATION
     Dosage: UNKNOWN
     Route: 048
  4. BLACK COHOSH [Concomitant]
     Active Substance: BLACK COHOSH
     Indication: NUTRITIONAL SUPPLEMENTATION
     Dosage: UNKNOWN
     Route: 048
  5. MULTIVITAMIN [Concomitant]
     Active Substance: VITAMINS
     Indication: NUTRITIONAL SUPPLEMENTATION
     Dosage: UNKNOWN
     Route: 048
  6. MAGNESIUM [Concomitant]
     Active Substance: MAGNESIUM
     Indication: NUTRITIONAL SUPPLEMENTATION
     Dosage: UNKNOWN
     Route: 048
  7. COENZYME Q10 [Concomitant]
     Active Substance: UBIDECARENONE
     Indication: NUTRITIONAL SUPPLEMENTATION
     Dosage: UNKNOWN
     Route: 048
  8. GINSENG [Concomitant]
     Active Substance: ASIAN GINSENG
     Indication: NUTRITIONAL SUPPLEMENTATION
     Dosage: UNKNOWN
     Route: 048
  9. RED YEAST RICE [Concomitant]
     Active Substance: DIETARY SUPPLEMENT
     Indication: NUTRITIONAL SUPPLEMENTATION
     Dosage: UNKNOWN
     Route: 048

REACTIONS (1)
  - Hypoaesthesia oral [Not Recovered/Not Resolved]

NARRATIVE: CASE EVENT DATE: 20150605
